FAERS Safety Report 10925559 (Version 1)
Quarter: 2015Q1

REPORT INFORMATION
  Report Type: Spontaneous
  Country: US (occurrence: None)
  Receive Date: 20150129
  Receipt Date: 20150129
  Transmission Date: 20150721
  Serious: Yes (Hospitalization)
  Sender: FDA-Public Use
  Company Number: 123283U

PATIENT
  Age: 73 Year
  Sex: Male

DRUGS (2)
  1. VALPROATE (VALPROATE SODIUM) [Suspect]
     Active Substance: VALPROATE SODIUM
     Dosage: UNKNOWN DOSE AND FREQUENCY
  2. LEVETIRACTAM [Suspect]
     Active Substance: LEVETIRACETAM
     Dosage: UNKNOWN DOSE?

REACTIONS (1)
  - Drug ineffective [None]
